FAERS Safety Report 23891658 (Version 1)
Quarter: 2024Q2

REPORT INFORMATION
  Report Type: Spontaneous
  Country: IN (occurrence: IN)
  Receive Date: 20240524
  Receipt Date: 20240524
  Transmission Date: 20240716
  Serious: Yes (Death, Other)
  Sender: FDA-Public Use
  Company Number: IN-GALDERMA-IN2024008494

PATIENT

DRUGS (1)
  1. AKLIEF [Suspect]
     Active Substance: TRIFAROTENE
     Indication: Acne
     Dosage: 1 DOSAGE FORM, QD, ON FACE
     Route: 061
     Dates: start: 20240125, end: 20240325

REACTIONS (1)
  - Death [Fatal]

NARRATIVE: CASE EVENT DATE: 20240325
